FAERS Safety Report 21683599 (Version 1)
Quarter: 2022Q4

REPORT INFORMATION
  Report Type: Report from Study
  Country: US (occurrence: US)
  Receive Date: 20221205
  Receipt Date: 20221205
  Transmission Date: 20230113
  Serious: Yes (Death, Hospitalization, Other)
  Sender: FDA-Public Use
  Company Number: US-EXELIXIS-XL18422055639

PATIENT

DRUGS (2)
  1. PLACEBO [Suspect]
     Active Substance: UNSPECIFIED INGREDIENT
     Indication: Small intestine neuroendocrine tumour
     Dosage: 60 MG, QD
     Route: 048
     Dates: start: 20220131, end: 20220717
  2. CABOZANTINIB [Suspect]
     Active Substance: CABOZANTINIB
     Indication: Small intestine neuroendocrine tumour
     Dosage: 60 MG, QD
     Route: 048
     Dates: start: 20220131, end: 20220717

REACTIONS (10)
  - Small intestinal obstruction [Fatal]
  - Spontaneous bacterial peritonitis [Unknown]
  - Fatigue [Unknown]
  - Nausea [Unknown]
  - Vomiting [Recovered/Resolved]
  - Abdominal distension [Unknown]
  - Abdominal distension [Unknown]
  - Anaemia [Unknown]
  - Oedema peripheral [Unknown]
  - Abdominal pain [Unknown]

NARRATIVE: CASE EVENT DATE: 20220718
